FAERS Safety Report 8968071 (Version 1)
Quarter: 2012Q4

REPORT INFORMATION
  Report Type: Report from Study
  Country: ES (occurrence: ES)
  Receive Date: 20121218
  Receipt Date: 20121218
  Transmission Date: 20130627
  Serious: Yes (Hospitalization)
  Sender: FDA-Public Use
  Company Number: ES-MERCK-1212ESP005624

PATIENT
  Age: 51 Year
  Sex: Female
  Weight: 71.6 kg

DRUGS (6)
  1. TEMOZOLOMIDE [Suspect]
     Indication: GLIOBLASTOMA
     Dosage: 85 mg/m2, qd
     Route: 048
     Dates: start: 20101027
  2. BEVACIZUMAB [Suspect]
     Indication: GLIOBLASTOMA
     Dosage: 10 mg/m2, qd
     Route: 042
     Dates: start: 20101027
  3. FORTECORTIN [Concomitant]
     Indication: PROPHYLAXIS
     Dosage: 4.5 mg, UNK
     Route: 048
  4. KEPPRA [Concomitant]
     Indication: EPILEPSY
     Dosage: 1 g, UNK
     Route: 048
  5. ACETAMINOPHEN [Concomitant]
     Route: 048
  6. OMEPRAZOLE [Concomitant]
     Dosage: 20 mg, UNK
     Route: 048

REACTIONS (1)
  - Pulmonary embolism [Recovered/Resolved]
